FAERS Safety Report 6189967-1 (Version None)
Quarter: 2009Q2

REPORT INFORMATION
  Report Type: 
  Country: None (occurrence: None)
  Receive Date: 20090514
  Receipt Date: 20090506
  Transmission Date: 20091009
  Serious: Yes (Disabling, Other)
  Sender: FDA-Public Use
  Company Number: PHEH2008US08146

PATIENT
  Sex: Female
  Weight: 74.83 kg

DRUGS (3)
  1. AREDIA [Suspect]
  2. ZOMETA [Suspect]
  3. TAMOXIFEN CITRATE [Concomitant]

REACTIONS (9)
  - ANHEDONIA [None]
  - ANXIETY [None]
  - BONE NEOPLASM MALIGNANT [None]
  - DISABILITY [None]
  - GENERAL PHYSICAL HEALTH DETERIORATION [None]
  - INJURY [None]
  - OSTEONECROSIS [None]
  - PAIN [None]
  - TOOTH EXTRACTION [None]
